FAERS Safety Report 15125719 (Version 1)
Quarter: 2018Q3

REPORT INFORMATION
  Report Type: Spontaneous
  Country: NZ (occurrence: NZ)
  Receive Date: 20180710
  Receipt Date: 20180710
  Transmission Date: 20181010
  Serious: Yes (Death)
  Sender: FDA-Public Use
  Company Number: NZ-PFIZER INC-2018275995

PATIENT
  Age: 5 Month
  Sex: Male

DRUGS (21)
  1. CEFOTAXIME [Suspect]
     Active Substance: CEFOTAXIME SODIUM
     Indication: EVIDENCE BASED TREATMENT
  2. AMOXICILLIN. [Suspect]
     Active Substance: AMOXICILLIN
     Indication: PYREXIA
  3. TACROLIMUS. [Concomitant]
     Active Substance: TACROLIMUS
     Indication: IMMUNOSUPPRESSANT DRUG THERAPY
     Dosage: UNK
  4. METRONIDAZOLE. [Suspect]
     Active Substance: METRONIDAZOLE
     Indication: SERRATIA INFECTION
     Dosage: UNK
  5. METHYLPREDNISOLONE. [Concomitant]
     Active Substance: METHYLPREDNISOLONE
     Indication: IMMUNOSUPPRESSANT DRUG THERAPY
     Dosage: UNK
  6. SODIUM PHENYLBUTYRATE. [Concomitant]
     Active Substance: SODIUM PHENYLBUTYRATE
     Indication: ORNITHINE TRANSCARBAMOYLASE DEFICIENCY
     Dosage: UNK
  7. CEFOTAXIME [Suspect]
     Active Substance: CEFOTAXIME SODIUM
     Indication: SERRATIA INFECTION
     Dosage: UNK
  8. GENTAMICIN SULFATE. [Suspect]
     Active Substance: GENTAMICIN SULFATE
     Indication: CHOLANGITIS
  9. AMOXICILLIN. [Suspect]
     Active Substance: AMOXICILLIN
     Indication: CHOLANGITIS
     Dosage: UNK
     Route: 042
  10. DOBUTAMINE [Concomitant]
     Active Substance: DOBUTAMINE\DOBUTAMINE HYDROCHLORIDE
     Indication: HYPOTENSION
     Dosage: UNK
  11. AMIKACIN SULFATE. [Suspect]
     Active Substance: AMIKACIN SULFATE
     Indication: SERRATIA INFECTION
     Dosage: UNK
  12. GENTAMICIN SULFATE. [Suspect]
     Active Substance: GENTAMICIN SULFATE
     Indication: SERRATIA INFECTION
     Dosage: UNK
     Route: 042
  13. GENTAMICIN SULFATE. [Suspect]
     Active Substance: GENTAMICIN SULFATE
     Indication: PYREXIA
  14. AMOXICILLIN. [Suspect]
     Active Substance: AMOXICILLIN
     Indication: SERRATIA INFECTION
  15. AMIODARONE [Concomitant]
     Active Substance: AMIODARONE
     Indication: ATRIAL FLUTTER
     Dosage: UNK (INFUSION)
  16. ARGININE [Concomitant]
     Active Substance: ARGININE
     Indication: ORNITHINE TRANSCARBAMOYLASE DEFICIENCY
     Dosage: UNK
  17. NORADRENALINE /00127501/ [Concomitant]
     Active Substance: NOREPINEPHRINE
     Indication: HYPOTENSION
     Dosage: UNK (UP TO 0.11 UG/KG/HR)
  18. MEROPENEM. [Suspect]
     Active Substance: MEROPENEM
     Indication: SERRATIA INFECTION
     Dosage: UNK
  19. AMPHOTERICIN [Concomitant]
     Active Substance: AMPHOTERICIN B
     Indication: ANTIFUNGAL PROPHYLAXIS
     Dosage: UNK(LIPOSOMAL)
  20. ADENOSINE. [Concomitant]
     Active Substance: ADENOSINE
     Indication: ATRIAL FLUTTER
     Dosage: UNK
  21. SODIUM BENZOATE [Concomitant]
     Active Substance: SODIUM BENZOATE
     Indication: ORNITHINE TRANSCARBAMOYLASE DEFICIENCY
     Dosage: UNK

REACTIONS (1)
  - Drug ineffective [Fatal]
